FAERS Safety Report 4471894-9 (Version None)
Quarter: 2004Q4

REPORT INFORMATION
  Report Type: 
  Country: None (occurrence: None)
  Receive Date: 20041006
  Receipt Date: 20040920
  Transmission Date: 20050328
  Serious: Yes (Death, Hospitalization)
  Sender: FDA-Public Use
  Company Number: 2004-BP-08407RO

PATIENT
  Age: 67 Year
  Sex: Female

DRUGS (7)
  1. DEXAMETHASONE [Suspect]
     Indication: MULTIPLE MYELOMA
     Dosage: CYCLIC: 40 MG/D/CYCLE
     Dates: start: 20020812, end: 20020829
  2. LEVOTHYROXINE SODIUM [Concomitant]
  3. PROPOXYPHENE W/ACETAMINOPHEN (APOREX) [Concomitant]
  4. FLUTICASONE W/SALMETEROL (GALENIC/FLUTICASONE/SALMETEROL) [Concomitant]
  5. MULTIVITAMIN (MULTIVITAMINS) [Concomitant]
  6. BACTRIM [Concomitant]
  7. ESOMEPRAZOLE (ESOMEPRAZOLE) [Concomitant]

REACTIONS (14)
  - ALANINE AMINOTRANSFERASE INCREASED [None]
  - ANOREXIA [None]
  - ATELECTASIS [None]
  - BLOOD ALKALINE PHOSPHATASE INCREASED [None]
  - BLOOD BICARBONATE DECREASED [None]
  - BLOOD LACTATE DEHYDROGENASE INCREASED [None]
  - BREATH SOUNDS DECREASED [None]
  - CARDIAC FAILURE CONGESTIVE [None]
  - HEART RATE IRREGULAR [None]
  - PLEURAL EFFUSION [None]
  - RALES [None]
  - THERAPY NON-RESPONDER [None]
  - URINE OUTPUT DECREASED [None]
  - VENTRICULAR EXTRASYSTOLES [None]
